FAERS Safety Report 8997019 (Version 1)
Quarter: 2012Q4

REPORT INFORMATION
  Report Type: Spontaneous
  Country: GB (occurrence: None)
  Receive Date: 20121221
  Receipt Date: 20121221
  Transmission Date: 20130627
  Serious: Yes (Hospitalization, Other)
  Sender: FDA-Public Use
  Company Number: AUR-APL-2012-05306

PATIENT
  Age: 35 Year
  Sex: Male
  Weight: 47.63 kg

DRUGS (1)
  1. RAMIPRIL (RAMIPRIL) [Suspect]
     Indication: HYPERTENSION
     Route: 048
     Dates: start: 20120916, end: 20120926

REACTIONS (10)
  - Influenza like illness [None]
  - Chest pain [None]
  - Hypersensitivity [None]
  - Confusional state [None]
  - Depression [None]
  - Sensation of heaviness [None]
  - Photosensitivity reaction [None]
  - Visual impairment [None]
  - Upper-airway cough syndrome [None]
  - Oropharyngeal pain [None]
